FAERS Safety Report 4625944-7 (Version None)
Quarter: 2005Q1

REPORT INFORMATION
  Report Type: 
  Country: None (occurrence: None)
  Receive Date: 20050330
  Receipt Date: 20050315
  Transmission Date: 20050727
  Serious: Yes (Other)
  Sender: FDA-Public Use
  Company Number: USA050392591

PATIENT
  Sex: Male

DRUGS (3)
  1. PROZAC [Suspect]
     Indication: ANXIETY
     Dosage: 20 MG DAY
     Dates: start: 20050228, end: 20050307
  2. ATIVAN [Concomitant]
  3. CIPRO [Concomitant]

REACTIONS (11)
  - ABNORMAL BEHAVIOUR [None]
  - AGGRESSION [None]
  - ANGER [None]
  - CRYING [None]
  - DEPRESSION [None]
  - MENTAL DISORDER [None]
  - MUSCLE TWITCHING [None]
  - MUSCULOSKELETAL STIFFNESS [None]
  - PARAESTHESIA [None]
  - PARAESTHESIA ORAL [None]
  - SUICIDAL IDEATION [None]
